FAERS Safety Report 4918505-3 (Version None)
Quarter: 2006Q1

REPORT INFORMATION
  Report Type: 
  Country: None (occurrence: None)
  Receive Date: 20060217
  Receipt Date: 20060217
  Transmission Date: 20060701
  Serious: Yes (Hospitalization)
  Sender: FDA-Public Use
  Company Number: None

PATIENT
  Age: 74 Year
  Sex: Male
  Weight: 76.2 kg

DRUGS (4)
  1. IRINOTECAN HCL [Suspect]
     Dosage: IV X 1 125 MG
     Route: 042
     Dates: start: 20060130
  2. IRINOTECAN HCL [Suspect]
     Dosage: IV X 1 125 MG
     Route: 042
     Dates: start: 20060206
  3. CISPLATIN [Suspect]
     Dosage: IV X 1 58 MG
     Route: 042
     Dates: start: 20060130
  4. CISPLATIN [Suspect]
     Dosage: IV X 1 58 MG
     Route: 042
     Dates: start: 20060206

REACTIONS (7)
  - ASTHENIA [None]
  - HAEMOGLOBIN DECREASED [None]
  - NEUTROPENIA [None]
  - ORAL INTAKE REDUCED [None]
  - PYREXIA [None]
  - RENAL FAILURE [None]
  - TUMOUR HAEMORRHAGE [None]
